FAERS Safety Report 4536457-5 (Version None)
Quarter: 2004Q4

REPORT INFORMATION
  Report Type: 
  Country: None (occurrence: None)
  Receive Date: 20041223
  Receipt Date: 20041220
  Transmission Date: 20050328
  Serious: Yes (Death, Hospitalization)
  Sender: FDA-Public Use
  Company Number: US-JNJFOC-20041205499

PATIENT
  Age: 83 Year
  Sex: Male

DRUGS (1)
  1. DURAGESIC [Suspect]
     Route: 062

REACTIONS (6)
  - COMA [None]
  - FALL [None]
  - FAT EMBOLISM [None]
  - FEMUR FRACTURE [None]
  - OVERDOSE [None]
  - URINARY TRACT INFECTION [None]
